FAERS Safety Report 8636925 (Version 3)
Quarter: 2012Q4

REPORT INFORMATION
  Report Type: 
  Country: ES (occurrence: ES)
  Receive Date: 20120626
  Receipt Date: 20120910
  Transmission Date: 20130627
  Serious: Yes (Death, Congenital Anomaly, Other)
  Sender: FDA-Public Use
  Company Number: ES-ABBOTT-12P-144-0948566-00

PATIENT

DRUGS (1)
  1. HUMIRA [Suspect]
     Route: 064

REACTIONS (4)
  - Foetal death [Fatal]
  - Foetal malformation [Unknown]
  - Foetal exposure during pregnancy [Unknown]
  - Foetal growth restriction [Unknown]
